FAERS Safety Report 20933673 (Version 1)
Quarter: 2022Q2

REPORT INFORMATION
  Report Type: Spontaneous
  Country: GR (occurrence: GR)
  Receive Date: 20220608
  Receipt Date: 20220608
  Transmission Date: 20220721
  Serious: Yes (Life-Threatening, Hospitalization, Other)
  Sender: FDA-Public Use
  Company Number: GR-COOPER-2022-04-341

PATIENT
  Age: 79 Year
  Sex: Male

DRUGS (1)
  1. MEROPENEM [Suspect]
     Active Substance: MEROPENEM
     Indication: Pathogen resistance
     Dosage: UNK

REACTIONS (4)
  - Acute kidney injury [Unknown]
  - Haemolysis [Unknown]
  - Haemoglobinuria [Unknown]
  - Pyrexia [Unknown]
